FAERS Safety Report 6570177-0 (Version None)
Quarter: 2010Q1

REPORT INFORMATION
  Report Type: 
  Country: None (occurrence: None)
  Receive Date: 20100204
  Receipt Date: 20100201
  Transmission Date: 20100710
  Serious: Yes (Death)
  Sender: FDA-Public Use
  Company Number: US-ASTRAZENECA-2010SE04352

PATIENT
  Age: 35 Year
  Sex: Male

DRUGS (3)
  1. SEROQUEL [Suspect]
     Route: 048
  2. MORPHINE [Concomitant]
     Indication: BACK PAIN
  3. METHADONE [Concomitant]

REACTIONS (1)
  - COMPLETED SUICIDE [None]
